FAERS Safety Report 11659302 (Version 1)
Quarter: 2015Q4

REPORT INFORMATION
  Report Type: Report from Study
  Country: BR (occurrence: BR)
  Receive Date: 20151026
  Receipt Date: 20151026
  Transmission Date: 20160304
  Serious: Yes (Hospitalization, Other)
  Sender: FDA-Public Use
  Company Number: BR-TAKEDA-2015MPI006941

PATIENT

DRUGS (2)
  1. VELCADE [Suspect]
     Active Substance: BORTEZOMIB
     Indication: PLASMA CELL MYELOMA
     Dosage: 1.3 MG/M2, UNK
     Route: 058
     Dates: start: 20130702, end: 20130726
  2. VELCADE [Suspect]
     Active Substance: BORTEZOMIB
     Dosage: 1.3 MG/M2, UNK
     Route: 058
     Dates: start: 20131226

REACTIONS (7)
  - Nephropathy [Recovering/Resolving]
  - Hip fracture [Recovered/Resolved]
  - Musculoskeletal pain [Not Recovered/Not Resolved]
  - Proteinuria [Recovered/Resolved]
  - Weight increased [Not Recovered/Not Resolved]
  - Haemoglobinuria [Recovered/Resolved]
  - Haematuria [Recovered/Resolved]

NARRATIVE: CASE EVENT DATE: 20130704
